FAERS Safety Report 10204372 (Version 1)
Quarter: 2014Q2

REPORT INFORMATION
  Report Type: Spontaneous
  Country: US (occurrence: US)
  Receive Date: 20140529
  Receipt Date: 20140529
  Transmission Date: 20141212
  Serious: No
  Sender: FDA-Public Use
  Company Number: US-MYLANLABS-2014S1003712

PATIENT
  Sex: Female

DRUGS (4)
  1. AMITRIPTYLINE HYDROCHLORIDE TABLETS, USP [Suspect]
     Indication: DEPRESSION
     Route: 048
     Dates: end: 201401
  2. AMITRIPTYLINE HYDROCHLORIDE TABLETS, USP [Suspect]
     Indication: DEPRESSION
     Route: 048
     Dates: start: 201401, end: 201402
  3. AMITRIPTYLINE HYDROCHLORIDE TABLETS, USP [Suspect]
     Indication: DEPRESSION
     Route: 048
     Dates: start: 201402
  4. VITAMINS [Concomitant]
     Route: 048

REACTIONS (3)
  - Withdrawal syndrome [Recovered/Resolved]
  - Depressed mood [Recovered/Resolved]
  - Insomnia [Recovered/Resolved]
